FAERS Safety Report 19298852 (Version 1)
Quarter: 2021Q2

REPORT INFORMATION
  Report Type: Spontaneous
  Country: DE (occurrence: DE)
  Receive Date: 20210525
  Receipt Date: 20210525
  Transmission Date: 20210717
  Serious: Yes (Other)
  Sender: FDA-Public Use
  Company Number: DE-SAMSUNG BIOEPIS-SB-2021-12519

PATIENT
  Sex: Female

DRUGS (1)
  1. BENEPALI [Suspect]
     Active Substance: ETANERCEPT
     Indication: ANKYLOSING SPONDYLITIS
     Dosage: UNKNOWN
     Route: 058

REACTIONS (4)
  - Hypersensitivity [Unknown]
  - Urticaria [Unknown]
  - Shock [Unknown]
  - Cold urticaria [Unknown]
